FAERS Safety Report 6264373-X (Version None)
Quarter: 2009Q3

REPORT INFORMATION
  Report Type: 
  Country: None (occurrence: None)
  Receive Date: 20090710
  Receipt Date: 20090629
  Transmission Date: 20100115
  Serious: Yes (Other)
  Sender: FDA-Public Use
  Company Number: B0558333A

PATIENT
  Sex: Female
  Weight: 71 kg

DRUGS (5)
  1. ARIXTRA [Suspect]
     Dosage: 7.5MG PER DAY
     Route: 058
     Dates: start: 20090127, end: 20090203
  2. DILTIAZEM HCL [Concomitant]
     Route: 065
  3. CANDESARTAN CILEXETIL [Concomitant]
     Route: 065
  4. SELOZOK [Concomitant]
     Route: 048
  5. LEVOTHYROX [Concomitant]
     Indication: THYROID DISORDER
     Route: 065

REACTIONS (6)
  - HYPERSENSITIVITY [None]
  - LOSS OF CONSCIOUSNESS [None]
  - MALAISE [None]
  - PRURITUS [None]
  - RASH GENERALISED [None]
  - RASH PAPULAR [None]
